FAERS Safety Report 9776996 (Version 2)
Quarter: 2013Q4

REPORT INFORMATION
  Report Type: Report from Study
  Country: BR (occurrence: BR)
  Receive Date: 20131221
  Receipt Date: 20131221
  Transmission Date: 20140711
  Serious: Yes (Other)
  Sender: FDA-Public Use
  Company Number: BR-ROCHE-1172086

PATIENT
  Sex: Female
  Weight: 59 kg

DRUGS (14)
  1. HYDROCHLOROTHIAZIDE [Concomitant]
  2. RITUXIMAB [Suspect]
     Indication: RHEUMATOID ARTHRITIS
     Route: 065
     Dates: start: 201210
  3. RITUXIMAB [Suspect]
     Route: 065
     Dates: start: 20100101, end: 20100101
  4. PREDNISONE [Suspect]
     Indication: PRODUCT USED FOR UNKNOWN INDICATION
     Route: 065
  5. PREDNISONE [Suspect]
     Route: 065
  6. CYCLOBENZAPRINE [Concomitant]
  7. DEFLAZACORT [Concomitant]
     Indication: RHEUMATOID ARTHRITIS
     Route: 065
  8. PARACETAMOL [Concomitant]
  9. CALCIUM CARBONATE [Concomitant]
  10. TECNOMET [Concomitant]
     Indication: RHEUMATOID ARTHRITIS
     Dosage: 0.5 IN A WEEK
     Route: 065
  11. AMITRIPTYLINE [Concomitant]
  12. CLONAZEPAM [Concomitant]
  13. ALENDRONATE [Concomitant]
  14. FOLIC ACID [Concomitant]

REACTIONS (5)
  - Eye disorder [Not Recovered/Not Resolved]
  - Pain [Recovered/Resolved]
  - Swelling [Not Recovered/Not Resolved]
  - Speech disorder [Recovering/Resolving]
  - Visual impairment [Not Recovered/Not Resolved]
